FAERS Safety Report 6173884-7 (Version None)
Quarter: 2009Q2

REPORT INFORMATION
  Report Type: 
  Country: None (occurrence: None)
  Receive Date: 20090430
  Receipt Date: 20090420
  Transmission Date: 20091009
  Serious: Yes (Death)
  Sender: FDA-Public Use
  Company Number: JP-PFIZER INC-2009203110

PATIENT

DRUGS (8)
  1. SUNITINIB MALATE [Suspect]
     Indication: RENAL CELL CARCINOMA
     Route: 048
  2. ROHYPNOL [Concomitant]
     Dosage: UNK
     Dates: start: 20080717
  3. LENDORMIN [Concomitant]
     Dosage: UNK
     Dates: start: 20080717
  4. GASMOTIN [Concomitant]
  5. TAKEPRON [Concomitant]
  6. MOHRUS [Concomitant]
     Dosage: UNK
     Dates: start: 20080725
  7. TOCLASE [Concomitant]
     Dosage: UNK
     Dates: start: 20080803
  8. APHTASOLON [Concomitant]
     Dosage: UNK
     Dates: start: 20080814

REACTIONS (1)
  - COMPLETED SUICIDE [None]
